FAERS Safety Report 9596907 (Version 1)
Quarter: 2013Q4

REPORT INFORMATION
  Report Type: Spontaneous
  Country: DE (occurrence: DE)
  Receive Date: 20131004
  Receipt Date: 20131004
  Transmission Date: 20140711
  Serious: Yes (Hospitalization)
  Sender: FDA-Public Use
  Company Number: GXKR2013DE003176

PATIENT
  Age: 80 Year
  Sex: Female

DRUGS (6)
  1. MIRTAZAPINE [Suspect]
     Indication: DEPRESSION
     Dosage: 15 MG, UNK
  2. MIRTAZAPINE [Suspect]
     Dosage: 7.5 MG, QHS
     Dates: start: 201306
  3. TAVOR (LORAZEPAM) [Concomitant]
     Dates: start: 2009
  4. DESLORATADIN [Concomitant]
  5. TENORMIN [Concomitant]
  6. VOTUM PLUS [Concomitant]

REACTIONS (3)
  - Hyponatraemia [Recovering/Resolving]
  - Syncope [Recovering/Resolving]
  - Inappropriate antidiuretic hormone secretion [Recovering/Resolving]
